FAERS Safety Report 9501759 (Version 3)
Quarter: 2013Q4

REPORT INFORMATION
  Report Type: Spontaneous
  Country: US (occurrence: None)
  Receive Date: 20130107
  Receipt Date: 20131226
  Transmission Date: 20140711
  Serious: Yes (Other)
  Sender: FDA-Public Use
  Company Number: PHEH2012US017836

PATIENT
  Age: 52 Year
  Sex: Female

DRUGS (4)
  1. GILENYA [Suspect]
     Indication: MULTIPLE SCLEROSIS
     Dosage: 0.5 MG, QD, ORAL
     Route: 048
     Dates: start: 20120821
  2. TUMS (CALCIUM CARBONATE) [Concomitant]
  3. ADVIL [Concomitant]
  4. RANITIDINE [Concomitant]

REACTIONS (8)
  - Irritability [None]
  - Oropharyngeal pain [None]
  - Ear pain [None]
  - Middle ear effusion [None]
  - Increased upper airway secretion [None]
  - Rhinorrhoea [None]
  - Malaise [None]
  - Cough [None]
